FAERS Safety Report 19816346 (Version 6)
Quarter: 2023Q2

REPORT INFORMATION
  Report Type: Report from Study
  Country: US (occurrence: US)
  Receive Date: 20210910
  Receipt Date: 20230418
  Transmission Date: 20230721
  Serious: Yes (Death, Life-Threatening)
  Sender: FDA-Public Use
  Company Number: US-PFIZER INC-202101133804

PATIENT
  Age: 30 Year
  Sex: Male

DRUGS (6)
  1. ALPRAZOLAM [Interacting]
     Active Substance: ALPRAZOLAM
  2. FENTANYL CITRATE [Interacting]
     Active Substance: FENTANYL CITRATE
     Dosage: UNK
  3. METHAMPHETAMINE [Interacting]
     Active Substance: METHAMPHETAMINE
     Dosage: UNK
  4. ETIZOLAM [Interacting]
     Active Substance: ETIZOLAM
  5. AMPHETAMINE [Suspect]
     Active Substance: AMPHETAMINE
  6. COCAINE [Suspect]
     Active Substance: COCAINE

REACTIONS (6)
  - Hypertrophic cardiomyopathy [Fatal]
  - Toxicity to various agents [Fatal]
  - Pulmonary oedema [Fatal]
  - Drug interaction [Fatal]
  - Pulmonary congestion [Fatal]
  - Brain oedema [Fatal]
